FAERS Safety Report 5207168-8 (Version None)
Quarter: 2007Q1

REPORT INFORMATION
  Report Type: 
  Country: None (occurrence: None)
  Receive Date: 20070112
  Receipt Date: 20070102
  Transmission Date: 20070707
  Serious: Yes (Hospitalization, Other)
  Sender: FDA-Public Use
  Company Number: US-AVENTIS-200710073US

PATIENT
  Sex: Male

DRUGS (7)
  1. FUROSEMIDE [Suspect]
     Indication: OEDEMA PERIPHERAL
     Route: 048
     Dates: start: 20030601
  2. BLINDED TRIAL MEDICATIONS [Suspect]
     Indication: INTESTINAL FUNCTIONAL DISORDER
     Dosage: DOSE: UNK
     Route: 048
     Dates: start: 20051229
  3. NADOLOL [Concomitant]
     Dosage: DOSE: UNK
  4. POTASSIUM ACETATE [Concomitant]
     Dosage: DOSE: UNK
  5. LEXAPRO [Concomitant]
  6. LEXAPRO [Concomitant]
     Dosage: DOSE: UNK
  7. METHADONE HCL [Concomitant]
     Dosage: DOSE: UNK

REACTIONS (9)
  - BACK PAIN [None]
  - DEHYDRATION [None]
  - ELECTROCARDIOGRAM QT PROLONGED [None]
  - HYPERTENSION [None]
  - PALPITATIONS [None]
  - PRESYNCOPE [None]
  - SINUS BRADYCARDIA [None]
  - VENOUS INSUFFICIENCY [None]
  - VENTRICULAR EXTRASYSTOLES [None]
